FAERS Safety Report 6723894-3 (Version None)
Quarter: 2010Q2

REPORT INFORMATION
  Report Type: 
  Country: None (occurrence: None)
  Receive Date: 20100513
  Receipt Date: 20100505
  Transmission Date: 20101027
  Serious: Yes (Other)
  Sender: FDA-Public Use
  Company Number: US-WATSON-2010-06165

PATIENT
  Age: 26 Year
  Sex: Female

DRUGS (1)
  1. LEVONORGESTREL [Suspect]
     Indication: POST COITAL CONTRACEPTION
     Dosage: 1ST TABLET AT MIDNIGHT, 2ND TABLET 12H LATER
     Route: 048
     Dates: start: 20100501, end: 20100501

REACTIONS (4)
  - CRYING [None]
  - DEPRESSION [None]
  - DEPRESSION SUICIDAL [None]
  - IRRITABILITY [None]
